FAERS Safety Report 14860401 (Version 3)
Quarter: 2019Q2

REPORT INFORMATION
  Report Type: Report from Study
  Country: None (occurrence: TR)
  Receive Date: 20180508
  Receipt Date: 20190515
  Transmission Date: 20190711
  Serious: Yes (Other)
  Sender: FDA-Public Use
  Company Number: TR-ABBVIE-18K-161-2347098-00

PATIENT
  Age: 57 Year
  Sex: Female
  Weight: 62 kg

DRUGS (2)
  1. HUMIRA [Suspect]
     Active Substance: ADALIMUMAB
     Indication: RHEUMATOID ARTHRITIS
     Route: 058
     Dates: start: 20180103, end: 20180424
  2. INH [Concomitant]
     Active Substance: ISONIAZID
     Indication: TUBERCULOSIS
     Route: 048
     Dates: start: 20180103, end: 201804

REACTIONS (2)
  - Tachycardia [Recovered/Resolved]
  - Pleurisy [Recovering/Resolving]

NARRATIVE: CASE EVENT DATE: 201802
